FAERS Safety Report 5187945-2 (Version None)
Quarter: 2006Q4

REPORT INFORMATION
  Report Type: 
  Country: None (occurrence: None)
  Receive Date: 20061221
  Receipt Date: 20061004
  Transmission Date: 20070319
  Serious: Yes (Hospitalization)
  Sender: FDA-Public Use
  Company Number: FRWYE120204OCT06

PATIENT
  Sex: Male
  Weight: 68 kg

DRUGS (3)
  1. ENBREL [Suspect]
     Indication: PSORIATIC ARTHROPATHY
     Route: 058
     Dates: start: 20030602, end: 20060619
  2. ACETAMINOPHEN [Concomitant]
     Dosage: 0 TO 3 G DAILY; INTERMITTENT INTAKE
     Route: 048
     Dates: start: 19860101
  3. FELDENE [Concomitant]
     Indication: RHEUMATOID ARTHRITIS
     Dosage: 0 TO 20 MG DAILY; INTERMITTENT INTAKE
     Route: 048
     Dates: start: 19860101

REACTIONS (4)
  - BILE DUCT OBSTRUCTION [None]
  - GASTROINTESTINAL DISORDER POSTOPERATIVE [None]
  - MALIGNANT NEOPLASM OF AMPULLA OF VATER [None]
  - PERITONITIS [None]
